FAERS Safety Report 6316792-0 (Version None)
Quarter: 2009Q3

REPORT INFORMATION
  Report Type: 
  Country: None (occurrence: None)
  Receive Date: 20090820
  Receipt Date: 20090812
  Transmission Date: 20100115
  Serious: Yes (Hospitalization)
  Sender: FDA-Public Use
  Company Number: CA-AMGEN-KDL359100

PATIENT
  Sex: Female
  Weight: 72.6 kg

DRUGS (11)
  1. ENBREL [Suspect]
     Indication: RHEUMATOID ARTHRITIS
     Route: 058
     Dates: start: 20070413, end: 20081001
  2. VITAMIN B-12 [Concomitant]
  3. GLYBURIDE [Concomitant]
  4. METFORMIN [Concomitant]
  5. PLAQUENIL [Concomitant]
     Dates: start: 20060601
  6. PREDNISONE [Concomitant]
     Dates: start: 20060501
  7. FOSAVANCE [Concomitant]
     Dates: start: 20070901
  8. PANTOPRAZOLE SODIUM [Concomitant]
  9. INSULIN [Concomitant]
  10. TYLENOL W/ CODEINE NO. 2 [Concomitant]
  11. COLACE [Concomitant]

REACTIONS (3)
  - INTERSTITIAL LUNG DISEASE [None]
  - PULMONARY TUBERCULOSIS [None]
  - THERAPEUTIC RESPONSE DECREASED [None]
